FAERS Safety Report 18575209 (Version 1)
Quarter: 2020Q4

REPORT INFORMATION
  Report Type: Spontaneous
  Country: CN (occurrence: CN)
  Receive Date: 20201203
  Receipt Date: 20201203
  Transmission Date: 20210114
  Serious: Yes (Other)
  Sender: FDA-Public Use
  Company Number: CN-PFIZER INC-2020473542

PATIENT
  Age: 9 Year
  Sex: Male
  Weight: 46 kg

DRUGS (2)
  1. CYTOSAR [Suspect]
     Active Substance: CYTARABINE
     Indication: BURKITT^S LYMPHOMA
     Dosage: 68 MG, 1X/DAY
     Route: 041
     Dates: start: 20201024, end: 20201028
  2. CYTOSAR [Suspect]
     Active Substance: CYTARABINE
     Dosage: 4 G, 1X/DAY
     Route: 041
     Dates: start: 20201025, end: 20201028

REACTIONS (3)
  - Drug hypersensitivity [Recovering/Resolving]
  - Rash erythematous [Recovering/Resolving]
  - Pruritus [Recovering/Resolving]

NARRATIVE: CASE EVENT DATE: 20201031
